FAERS Safety Report 16149176 (Version 1)
Quarter: 2019Q2

REPORT INFORMATION
  Report Type: Spontaneous
  Country: FR (occurrence: FR)
  Receive Date: 20190402
  Receipt Date: 20190402
  Transmission Date: 20190711
  Serious: Yes (Other)
  Sender: FDA-Public Use
  Company Number: FR-MYLANLABS-2019M1028641

PATIENT
  Age: 57 Year
  Sex: Male
  Weight: 70 kg

DRUGS (10)
  1. MYCOPHENOLATE MOFETIL. [Suspect]
     Active Substance: MYCOPHENOLATE MOFETIL
     Indication: PROPHYLAXIS AGAINST TRANSPLANT REJECTION
     Dosage: 2 DF, QD
     Route: 065
     Dates: start: 2014
  2. MECIR [Concomitant]
     Active Substance: TAMSULOSIN HYDROCHLORIDE
     Dosage: UNK UNK, UNK
     Route: 065
  3. BACTRIM [Concomitant]
     Active Substance: SULFAMETHOXAZOLE\TRIMETHOPRIM
     Dosage: UNK UNK, UNK
     Route: 065
  4. AMLOR [Concomitant]
     Active Substance: AMLODIPINE BESYLATE
     Dosage: UNK UNK, UNK
     Route: 065
  5. SELOKEN                            /00376902/ [Concomitant]
     Active Substance: METOPROLOL TARTRATE
     Dosage: UNK UNK, UNK
     Route: 065
     Dates: start: 2014
  6. KARDEGIC [Concomitant]
     Active Substance: ASPIRIN DL-LYSINE
     Dosage: UNK UNK, UNK
     Route: 065
  7. TRIATEC                            /00885601/ [Suspect]
     Active Substance: RAMIPRIL
     Indication: NEPHROPROTECTIVE THERAPY
     Dosage: UNK UNK, UNK
     Route: 048
     Dates: start: 20131024, end: 20180216
  8. TAHOR [Concomitant]
     Active Substance: ATORVASTATIN CALCIUM
     Dosage: UNK UNK, UNK
     Route: 065
  9. CERTICAN [Suspect]
     Active Substance: EVEROLIMUS
     Indication: PROPHYLAXIS AGAINST TRANSPLANT REJECTION
     Dosage: 2 DF, QD
     Route: 065
     Dates: start: 2017
  10. NEORAL [Suspect]
     Active Substance: CYCLOSPORINE
     Indication: PROPHYLAXIS AGAINST TRANSPLANT REJECTION
     Dosage: 2 DF, QD
     Route: 065
     Dates: start: 2014

REACTIONS (1)
  - Angioedema [Recovered/Resolved]

NARRATIVE: CASE EVENT DATE: 20180216
